FAERS Safety Report 6623113 (Version 2)
Quarter: 2012Q4

REPORT INFORMATION
  Report Type: 
  Country: US (occurrence: US)
  Receive Date: 20080424
  Receipt Date: 20121112
  Transmission Date: 20130627
  Serious: Yes (Hospitalization)
  Sender: FDA-Public Use
  Company Number: US-JNJFOC-20071107813

PATIENT
  Sex: Male

DRUGS (2)
  1. MOTRIN IB [Suspect]
     Route: 065
  2. MOTRIN IB [Suspect]
     Indication: NECK PAIN
     Route: 065
     Dates: start: 20070717, end: 20070719

REACTIONS (5)
  - Upper gastrointestinal haemorrhage [Recovered/Resolved]
  - Gastric ulcer [Recovering/Resolving]
  - Duodenitis [Recovering/Resolving]
  - Anaemia [None]
  - Helicobacter infection [None]
